FAERS Safety Report 23748574 (Version 2)
Quarter: 2024Q2

REPORT INFORMATION
  Report Type: Spontaneous
  Country: CA (occurrence: CA)
  Receive Date: 20240416
  Receipt Date: 20240502
  Transmission Date: 20240716
  Serious: Yes (Other)
  Sender: FDA-Public Use
  Company Number: CA-SUN PHARMACEUTICAL INDUSTRIES LTD-2024R1-441377

PATIENT
  Age: 76 Year
  Sex: Male

DRUGS (4)
  1. RISPERIDONE [Suspect]
     Active Substance: RISPERIDONE
     Indication: Dementia
     Dosage: 0.25 MILLIGRAM TWICE DAILY
     Route: 065
  2. OLANZAPINE [Suspect]
     Active Substance: OLANZAPINE
     Indication: Neuropsychological symptoms
     Dosage: 2.5 MILLIGRAM DAILY (IN THE MORNING)
     Route: 048
     Dates: end: 20210704
  3. QUETIAPINE [Suspect]
     Active Substance: QUETIAPINE
     Indication: Hallucination
     Dosage: 12.5 MILLIGRAM DAILY
     Route: 048
     Dates: end: 20210726
  4. RIVASTIGMINE [Suspect]
     Active Substance: RIVASTIGMINE
     Indication: Dementia
     Dosage: 1.5 MILLIGRAM TWICE DAILY
     Route: 065

REACTIONS (1)
  - Cerebellar atrophy [Unknown]
